FAERS Safety Report 11119105 (Version 3)
Quarter: 2015Q4

REPORT INFORMATION
  Report Type: Spontaneous
  Country: US (occurrence: US)
  Receive Date: 20150518
  Receipt Date: 20151111
  Transmission Date: 20160304
  Serious: Yes (Hospitalization, Other)
  Sender: FDA-Public Use
  Company Number: US-MERCK-1505USA006612

PATIENT
  Sex: Female
  Weight: 86.17 kg

DRUGS (3)
  1. JANUMET [Suspect]
     Active Substance: METFORMIN HYDROCHLORIDE\SITAGLIPTIN PHOSPHATE
     Dosage: 50-1000 MG, UNK
     Route: 048
     Dates: start: 20110915
  2. JANUVIA [Suspect]
     Active Substance: SITAGLIPTIN PHOSPHATE
     Indication: TYPE 2 DIABETES MELLITUS
     Dosage: 100 MG, QD
     Route: 048
     Dates: start: 20071219, end: 20140303
  3. JANUMET [Suspect]
     Active Substance: METFORMIN HYDROCHLORIDE\SITAGLIPTIN PHOSPHATE
     Indication: TYPE 2 DIABETES MELLITUS
     Dosage: 50-500 MG, UNK
     Route: 048
     Dates: start: 20081015, end: 201109

REACTIONS (29)
  - Metastases to liver [Unknown]
  - Salivary gland neoplasm [Unknown]
  - Arthritis [Unknown]
  - Pancreatic carcinoma metastatic [Unknown]
  - Metastases to abdominal cavity [Unknown]
  - Skin lesion [Unknown]
  - Neck mass [Unknown]
  - Attention deficit/hyperactivity disorder [Unknown]
  - Renal cyst [Unknown]
  - Anaemia [Unknown]
  - Gastrooesophageal reflux disease [Unknown]
  - Metastases to salivary gland [Unknown]
  - Bed bug infestation [Unknown]
  - Hypertension [Unknown]
  - Intervertebral disc protrusion [Unknown]
  - Bursitis [Unknown]
  - Myalgia [Unknown]
  - Cholelithiasis [Unknown]
  - Pancreatitis acute [Unknown]
  - Thrombocytopenia [Unknown]
  - Metastases to lung [Unknown]
  - Splenic infarction [Unknown]
  - Neuropathy peripheral [Unknown]
  - Metastases to peritoneum [Unknown]
  - Diverticulum [Unknown]
  - Hysterectomy [Unknown]
  - Irritable bowel syndrome [Unknown]
  - Anxiety [Unknown]
  - Pruritus [Unknown]

NARRATIVE: CASE EVENT DATE: 201307
